FAERS Safety Report 7892661-X (Version None)
Quarter: 2011Q4

REPORT INFORMATION
  Report Type: 
  Country: None (occurrence: None)
  Receive Date: 20111102
  Receipt Date: 20111020
  Transmission Date: 20120403
  Serious: Yes (Other)
  Sender: FDA-Public Use
  Company Number: 1000025007

PATIENT
  Age: 65 Year
  Sex: Male
  Weight: 55 kg

DRUGS (3)
  1. ROFLUMILAST (ROFLUMILAST) (TABLETS) [Suspect]
     Indication: CHRONIC OBSTRUCTIVE PULMONARY DISEASE
     Dosage: ORAL
     Route: 048
  2. BETA BLOCKER (BETA BLOCKER) (BETA BLOCKER) [Concomitant]
  3. ACE INHIBITOR (ACE INHIBITOR) (ACE INHIBITOR) [Concomitant]

REACTIONS (4)
  - TACHYCARDIA [None]
  - ABDOMINAL PAIN [None]
  - SUICIDE ATTEMPT [None]
  - INTENTIONAL OVERDOSE [None]
